FAERS Safety Report 7574414-5 (Version None)
Quarter: 2011Q2

REPORT INFORMATION
  Report Type: 
  Country: None (occurrence: None)
  Receive Date: 20110627
  Receipt Date: 20110509
  Transmission Date: 20111010
  Serious: No
  Sender: FDA-Public Use
  Company Number: US-BAYER-2011-041182

PATIENT
  Age: 53 Year
  Sex: Male
  Weight: 79 kg

DRUGS (2)
  1. WELLBUTRIN [Concomitant]
     Dosage: UNK
  2. ALEVE (CAPLET) [Suspect]
     Indication: ANALGESIC THERAPY
     Dosage: 440 MG, ONCE
     Route: 048
     Dates: start: 20110505, end: 20110505

REACTIONS (4)
  - GASTRIC DISORDER [None]
  - NAUSEA [None]
  - ABNORMAL DREAMS [None]
  - ABDOMINAL DISCOMFORT [None]
